FAERS Safety Report 9315357 (Version 2)
Quarter: 2013Q3

REPORT INFORMATION
  Report Type: Spontaneous
  Country: US (occurrence: US)
  Receive Date: 20130529
  Receipt Date: 20130930
  Transmission Date: 20140515
  Serious: Yes (Hospitalization)
  Sender: FDA-Public Use
  Company Number: US-BAYER-2013-066233

PATIENT
  Age: 40 Year
  Sex: Female
  Weight: 74.83 kg

DRUGS (15)
  1. YAZ [Suspect]
     Dosage: UNK
     Dates: start: 20071109, end: 200911
  2. YASMIN [Suspect]
  3. METHYLPREDNISOLON [Concomitant]
     Dosage: UNK
     Dates: start: 20091023
  4. CLARITHROMYCIN [Concomitant]
     Dosage: UNK
     Dates: start: 20091023
  5. CLARINEX [DESLORATADINE] [Concomitant]
     Dosage: UNK
     Dates: start: 20091002
  6. SERTRALINE [Concomitant]
     Dosage: UNK
     Dates: start: 20091002
  7. ASTELIN [DIPROPHYLLINE] [Concomitant]
  8. PREDNISONE [Concomitant]
  9. ADVAIR DISKUS [Concomitant]
  10. SINGULAIR [Concomitant]
  11. FLONASE [Concomitant]
  12. SOLU MEDROL [Concomitant]
  13. ZOLOFT [Concomitant]
  14. FONDAPARINUX [Concomitant]
  15. BIAXIN [Concomitant]

REACTIONS (14)
  - Pulmonary embolism [Recovered/Resolved]
  - Deep vein thrombosis [Recovered/Resolved]
  - Thrombosis [Recovered/Resolved]
  - Vena cava thrombosis [Recovered/Resolved]
  - Injury [Recovered/Resolved]
  - Pain [None]
  - General physical health deterioration [Recovered/Resolved]
  - Anxiety [None]
  - Emotional distress [None]
  - Pain [Recovered/Resolved]
  - Anhedonia [None]
  - Non-cardiac chest pain [Recovered/Resolved]
  - Cough [Recovered/Resolved]
  - Haemoptysis [Recovered/Resolved]
